FAERS Safety Report 8177248-6 (Version None)
Quarter: 2012Q1

REPORT INFORMATION
  Report Type: 
  Country: None (occurrence: None)
  Receive Date: 20120124
  Receipt Date: 20111014
  Transmission Date: 20120608
  Serious: No
  Sender: FDA-Public Use
  Company Number: US-006577

PATIENT
  Age: 80 Year
  Sex: Male
  Weight: 101.6057 kg

DRUGS (6)
  1. LISINOPRIL [Concomitant]
  2. BYETTA [Concomitant]
  3. GLIMEPIRIDE [Concomitant]
  4. SIMVASTATIN [Concomitant]
  5. FIRMAGON [Suspect]
     Indication: PROSTATE CANCER
     Dosage: (240 MG TOTAL SUBCUTANEOUS)
     Route: 058
     Dates: start: 20110914, end: 20110914
  6. METFORMIN HCL [Concomitant]

REACTIONS (5)
  - INJECTION SITE ERYTHEMA [None]
  - PROSTATIC SPECIFIC ANTIGEN INCREASED [None]
  - INJECTION SITE DISCOMFORT [None]
  - INJECTION SITE PAIN [None]
  - INJECTION SITE PARAESTHESIA [None]
